FAERS Safety Report 17296857 (Version 2)
Quarter: 2020Q1

REPORT INFORMATION
  Report Type: Spontaneous
  Country: US (occurrence: US)
  Receive Date: 20200121
  Receipt Date: 20200128
  Transmission Date: 20200409
  Serious: Yes (Death, Hospitalization, Other)
  Sender: FDA-Public Use
  Company Number: US-ACTELION-A-NJ2020-200838

PATIENT
  Age: 2 Year
  Sex: Male

DRUGS (8)
  1. HYDROCHLOROTHIAZIDE. [Concomitant]
     Active Substance: HYDROCHLOROTHIAZIDE
  2. FAMOTIDINE. [Concomitant]
     Active Substance: FAMOTIDINE
  3. LEVOTHYROXINE. [Concomitant]
     Active Substance: LEVOTHYROXINE
  4. GABAPENTIN. [Concomitant]
     Active Substance: GABAPENTIN
  5. TRACLEER [Suspect]
     Active Substance: BOSENTAN
     Indication: PULMONARY ARTERIAL HYPERTENSION
     Dosage: 2.5 ML, BID VIA G-TUBE
     Route: 048
     Dates: start: 20191205, end: 20191221
  6. HEPARIN FLUSH [Concomitant]
     Active Substance: HEPARIN SODIUM
  7. ALBUTEROL. [Concomitant]
     Active Substance: ALBUTEROL
  8. CHOLECALCIFEROL [Concomitant]
     Active Substance: CHOLECALCIFEROL

REACTIONS (8)
  - Hypoxia [Fatal]
  - Pulmonary hypertension [Fatal]
  - Pulmonary haemorrhage [Fatal]
  - Terminal state [Not Recovered/Not Resolved]
  - Deep vein thrombosis [Unknown]
  - Bradycardia [Unknown]
  - Respiratory failure [Unknown]
  - Embolism [Unknown]

NARRATIVE: CASE EVENT DATE: 20191221
